FAERS Safety Report 18343905 (Version 1)
Quarter: 2020Q4

REPORT INFORMATION
  Report Type: Spontaneous
  Country: US (occurrence: US)
  Receive Date: 20201002
  Receipt Date: 20201002
  Transmission Date: 20210114
  Serious: Yes (Hospitalization)
  Sender: FDA-Public Use
  Company Number: None

PATIENT
  Age: 74 Year
  Sex: Male

DRUGS (1)
  1. APIXABAN (APIXABAN 5MG TAB) [Suspect]
     Active Substance: APIXABAN
     Indication: DEEP VEIN THROMBOSIS
     Dates: start: 20200617, end: 20200702

REACTIONS (5)
  - Gastrointestinal haemorrhage [None]
  - Shock haemorrhagic [None]
  - Disease recurrence [None]
  - Cardiac failure [None]
  - Transfusion [None]

NARRATIVE: CASE EVENT DATE: 20200625
